FAERS Safety Report 4531961-8 (Version None)
Quarter: 2004Q4

REPORT INFORMATION
  Report Type: 
  Country: None (occurrence: None)
  Receive Date: 20041216
  Receipt Date: 20041212
  Transmission Date: 20050328
  Serious: Yes (Death)
  Sender: FDA-Public Use
  Company Number: OXYA20040003

PATIENT
  Age: 31 Year
  Sex: Male

DRUGS (4)
  1. ACETAMINOPHEN/OXYCODONE         UNKNOWN        UNKNOWN [Suspect]
     Dosage: PO
     Route: 048
     Dates: end: 20030101
  2. METHADONE HCL [Suspect]
     Dosage: PO
     Route: 048
     Dates: end: 20030101
  3. OLANZAPINE [Suspect]
     Dosage: PO
     Route: 048
  4. CLONAZEPAM [Concomitant]

REACTIONS (2)
  - CARDIO-RESPIRATORY ARREST [None]
  - NARCOTIC INTOXICATION [None]
